FAERS Safety Report 10150324 (Version 2)
Quarter: 2014Q2

REPORT INFORMATION
  Report Type: Report from Study
  Country: US (occurrence: US)
  Receive Date: 20140502
  Receipt Date: 20140502
  Transmission Date: 20141212
  Serious: Yes (Hospitalization)
  Sender: FDA-Public Use
  Company Number: US-B.I. PHARMACEUTICALS,INC./RIDGEFIELD-2014-BI-17982BI

PATIENT
  Age: 72 Year
  Sex: Female

DRUGS (6)
  1. GILOTRIF [Suspect]
     Indication: NON-SMALL CELL LUNG CANCER
     Dosage: 40 MG
     Route: 048
     Dates: start: 20140407, end: 20140407
  2. GILOTRIF [Suspect]
     Dosage: 40 MG
     Route: 048
     Dates: start: 20140412
  3. LORAZEPAM [Concomitant]
     Dosage: 1 MG
     Route: 065
  4. PROCHLORPERAZINE [Concomitant]
     Dosage: 5 MG
     Route: 065
  5. VITAMIN D-3 [Concomitant]
     Route: 065
  6. CALCIUM [Concomitant]
     Route: 065

REACTIONS (5)
  - Diarrhoea [Not Recovered/Not Resolved]
  - Blood potassium decreased [Unknown]
  - Asthenia [Not Recovered/Not Resolved]
  - Drug dose omission [Unknown]
  - Diarrhoea [Not Recovered/Not Resolved]
